FAERS Safety Report 5907239-4 (Version None)
Quarter: 2008Q4

REPORT INFORMATION
  Report Type: 
  Country: None (occurrence: None)
  Receive Date: 20081003
  Receipt Date: 20080924
  Transmission Date: 20090506
  Serious: Yes (Hospitalization)
  Sender: FDA-Public Use
  Company Number: PHHY2008MT22397

PATIENT
  Sex: Female

DRUGS (1)
  1. CATAFAST [Suspect]
     Indication: PROCEDURAL PAIN
     Dosage: 50 MG, TID
     Route: 048
     Dates: start: 20080901, end: 20080901

REACTIONS (2)
  - DRUG ADMINISTRATION ERROR [None]
  - POST PROCEDURAL HAEMORRHAGE [None]
